FAERS Safety Report 6975427-4 (Version None)
Quarter: 2010Q3

REPORT INFORMATION
  Report Type: 
  Country: None (occurrence: None)
  Receive Date: 20100910
  Receipt Date: 20090408
  Transmission Date: 20110219
  Serious: Yes (Life-Threatening)
  Sender: FDA-Public Use
  Company Number: US-WYE-H08630109

PATIENT
  Sex: Female
  Weight: 52.66 kg

DRUGS (3)
  1. PRISTIQ [Suspect]
     Indication: MAJOR DEPRESSION
     Dosage: OVERDOSE AMOUNT 12 TABLETS
     Route: 048
     Dates: start: 20080930
  2. ALCOHOL [Suspect]
     Dosage: OVERDOSE AMOUNT UNSPECIFIED
  3. XANAX [Suspect]
     Indication: ANXIETY
     Dosage: 0.5 MG TWICE DAILY AS NEEDED; OVERDOSE AMOUNT 20 TABLETS

REACTIONS (1)
  - INTENTIONAL OVERDOSE [None]
